FAERS Safety Report 5929944-6 (Version None)
Quarter: 2008Q4

REPORT INFORMATION
  Report Type: 
  Country: None (occurrence: None)
  Receive Date: 20081024
  Receipt Date: 20081013
  Transmission Date: 20090506
  Serious: Yes (Hospitalization)
  Sender: FDA-Public Use
  Company Number: DE-PFIZER INC-2008076556

PATIENT
  Sex: Female
  Weight: 100 kg

DRUGS (11)
  1. LYRICA [Suspect]
     Indication: DIABETIC NEUROPATHY
     Route: 048
     Dates: start: 20061001, end: 20080701
  2. LYRICA [Suspect]
     Indication: PAIN
  3. CARBAMAZEPINE [Concomitant]
  4. DRUG, UNSPECIFIED [Concomitant]
  5. SIMVASTATIN [Concomitant]
  6. METFORMIN HYDROCHLORIDE [Concomitant]
  7. ACETYLSALICYLIC ACID SRT [Concomitant]
  8. EUGLUCON [Concomitant]
  9. DELIX [Concomitant]
  10. BERLINSULIN [Concomitant]
  11. RAMIPRIL [Concomitant]

REACTIONS (6)
  - ARTHROPATHY [None]
  - DISSOCIATIVE DISORDER [None]
  - FALL [None]
  - MUSCULAR WEAKNESS [None]
  - PAIN IN EXTREMITY [None]
  - PALLOR [None]
